FAERS Safety Report 7358247-0 (Version None)
Quarter: 2011Q1

REPORT INFORMATION
  Report Type: 
  Country: None (occurrence: None)
  Receive Date: 20110317
  Receipt Date: 20110308
  Transmission Date: 20110831
  Serious: Yes (Hospitalization)
  Sender: FDA-Public Use
  Company Number: JP-ASTRAZENECA-2011SE13963

PATIENT
  Age: 24593 Day
  Sex: Female
  Weight: 42 kg

DRUGS (31)
  1. LIPITOR [Concomitant]
     Indication: HYPERLIPIDAEMIA
     Route: 048
     Dates: start: 20050422
  2. OXYCONTIN [Concomitant]
     Route: 048
     Dates: start: 20050616
  3. GLUCOSE [Concomitant]
     Route: 042
     Dates: start: 20050524, end: 20050524
  4. AREDIA [Concomitant]
     Indication: METASTASES TO BONE
     Route: 042
     Dates: start: 20050426, end: 20050426
  5. AREDIA [Concomitant]
     Route: 042
     Dates: start: 20050621, end: 20050621
  6. MUCOSOLVAN [Concomitant]
     Indication: EMPHYSEMA
     Route: 048
     Dates: start: 20050422
  7. HOKUNALIN [Concomitant]
     Indication: EMPHYSEMA
     Route: 062
     Dates: start: 20050422
  8. OPSO [Concomitant]
     Indication: PAIN
     Route: 048
     Dates: start: 20050427
  9. ISOTONIC SODIUM CHLORIDE SOLUTION [Concomitant]
     Indication: INFECTION
     Route: 042
     Dates: start: 20050524, end: 20050526
  10. GLUCOSE [Concomitant]
     Route: 042
     Dates: start: 20050816, end: 20050816
  11. ARIMIDEX [Suspect]
     Indication: BREAST CANCER
     Route: 048
     Dates: start: 20050426, end: 20050829
  12. AREDIA [Concomitant]
     Route: 042
     Dates: start: 20050719, end: 20050719
  13. HYPEN [Concomitant]
     Indication: PAIN
     Route: 048
     Dates: start: 20050422
  14. FORSENID [Concomitant]
     Indication: CONSTIPATION
     Route: 048
     Dates: start: 20050424, end: 20050525
  15. KARY UNI [Concomitant]
     Indication: CATARACT
     Route: 047
     Dates: end: 20050612
  16. NIFLAN [Concomitant]
     Indication: CATARACT
     Route: 047
     Dates: end: 20050612
  17. OXYCONTIN [Concomitant]
     Indication: PAIN
     Route: 048
     Dates: start: 20050424, end: 20050429
  18. ADOFEED [Concomitant]
     Indication: PAIN IN EXTREMITY
     Route: 062
     Dates: start: 20050523, end: 20050530
  19. ISOTONIC SODIUM CHLORIDE SOLUTION [Concomitant]
     Route: 042
     Dates: start: 20050527, end: 20050530
  20. GLUCOSE [Concomitant]
     Indication: METASTASES TO BONE
     Route: 042
     Dates: start: 20050426, end: 20050426
  21. AREDIA [Concomitant]
     Route: 042
     Dates: start: 20050524, end: 20050524
  22. CEFAMEZIN [Concomitant]
     Indication: INFECTION
     Route: 042
     Dates: start: 20050524, end: 20050526
  23. GLUCOSE [Concomitant]
     Route: 042
     Dates: start: 20050621, end: 20050621
  24. PENTCILLIN [Concomitant]
     Indication: INFECTION
     Route: 042
     Dates: start: 20050527, end: 20050530
  25. AREDIA [Concomitant]
     Route: 042
     Dates: start: 20050816, end: 20050816
  26. TERSIGAN [Concomitant]
     Indication: EMPHYSEMA
     Route: 055
     Dates: start: 20050422
  27. VOLTAREN [Concomitant]
     Indication: PAIN
     Route: 054
     Dates: start: 20050424
  28. OXYCONTIN [Concomitant]
     Route: 048
     Dates: start: 20050429, end: 20050615
  29. GLUCOSE [Concomitant]
     Route: 042
     Dates: start: 20050719, end: 20050719
  30. DEPAS [Concomitant]
     Indication: INSOMNIA
     Route: 048
     Dates: start: 20050422
  31. NOVAMIN [Concomitant]
     Indication: VOMITING
     Route: 048
     Dates: start: 20050424, end: 20050512

REACTIONS (10)
  - NAUSEA [None]
  - UPPER RESPIRATORY TRACT INFECTION [None]
  - CONSTIPATION [None]
  - HEADACHE [None]
  - EMPHYSEMA [None]
  - HYPOAESTHESIA [None]
  - PAIN IN EXTREMITY [None]
  - VOMITING [None]
  - WEIGHT DECREASED [None]
  - ABDOMINAL PAIN UPPER [None]
